FAERS Safety Report 10182077 (Version 2)
Quarter: 2014Q2

REPORT INFORMATION
  Report Type: Spontaneous
  Country: US (occurrence: US)
  Receive Date: 20140520
  Receipt Date: 20140625
  Transmission Date: 20141212
  Serious: Yes (Other)
  Sender: FDA-Public Use
  Company Number: US-AMGEN-USASP2014035748

PATIENT
  Age: 64 Year
  Sex: Female

DRUGS (4)
  1. ENBREL [Suspect]
     Indication: PSORIASIS
     Dosage: 50 MG, 2 TIMES/WK
     Route: 058
     Dates: start: 200912, end: 201405
  2. PROZAC [Concomitant]
     Dosage: UNK
  3. ALTACE [Concomitant]
     Dosage: UNK
  4. LEVOTHYROXINE [Concomitant]
     Dosage: UNK

REACTIONS (3)
  - Squamous cell carcinoma [Unknown]
  - Malignant melanoma [Unknown]
  - Malignant melanoma in situ [Recovered/Resolved]
